FAERS Safety Report 18587930 (Version 2)
Quarter: 2020Q4

REPORT INFORMATION
  Report Type: Spontaneous
  Country: DE (occurrence: DE)
  Receive Date: 20201207
  Receipt Date: 20201221
  Transmission Date: 20210114
  Serious: Yes (Other)
  Sender: FDA-Public Use
  Company Number: NVSC2020DE320473

PATIENT
  Age: 60 Year
  Sex: Female

DRUGS (44)
  1. LIPOTALON [Suspect]
     Active Substance: DEXAMETHASONE PALMITATE
     Dosage: 1 DOSAGE FORM, SINGLE
     Route: 014
     Dates: start: 20181019, end: 20181019
  2. LIPOTALON [Suspect]
     Active Substance: DEXAMETHASONE PALMITATE
     Dosage: 1 DOSAGE FORM, SINGLE
     Route: 014
     Dates: start: 20181120, end: 20181120
  3. HYALURON [Concomitant]
     Indication: PRODUCT USED FOR UNKNOWN INDICATION
     Dosage: 1 DOSAGE FORM, SINGLE; RIGHT KNEE
     Route: 014
     Dates: start: 20181106, end: 20181106
  4. MEAVERIN [Concomitant]
     Indication: PRODUCT USED FOR UNKNOWN INDICATION
     Dosage: 1 DOSAGE FORM, SINGLE
     Route: 014
     Dates: start: 20181016, end: 20181016
  5. MEAVERIN [Concomitant]
     Dosage: 1 DOSAGE FORM, SINGLE; RIGHT KNEE AND FOOT
     Route: 014
     Dates: start: 20181120, end: 20181120
  6. LIPOTALON [Suspect]
     Active Substance: DEXAMETHASONE PALMITATE
     Dosage: 1 DOSAGE FORM, SINGLE
     Route: 014
     Dates: start: 20181102, end: 20181102
  7. HYALURON [Concomitant]
     Dosage: 1 DOSAGE FORM, SINGLE; RIGHT KNEE
     Route: 014
     Dates: start: 20181120, end: 20181120
  8. MEAVERIN [Concomitant]
     Dosage: 1 DOSAGE FORM, SINGLE; LEFT KNEE
     Route: 014
     Dates: start: 20181130, end: 20181130
  9. MEAVERIN [Concomitant]
     Dosage: 1 DOSAGE FORM, SINGLE; BOTH KNEES AND FOOT
     Route: 014
     Dates: start: 20181204, end: 20181204
  10. DEXAMETHASONE. [Suspect]
     Active Substance: DEXAMETHASONE
     Dosage: 1 DOSAGE FORM, SINGLE; LEFT KNEE
     Route: 014
     Dates: start: 20181130, end: 20181130
  11. LIPOTALON [Suspect]
     Active Substance: DEXAMETHASONE PALMITATE
     Indication: ARTHRALGIA
     Dosage: 1 DF, TOTAL, SINGLE (LEFT ELBOW)
     Route: 014
     Dates: start: 20181016, end: 20181016
  12. PREDNISOLON JENAPHARM [Suspect]
     Active Substance: PREDNISOLONE
     Indication: EPICONDYLITIS
     Dosage: 60 MG, QD (20 MG, TID)
     Route: 048
     Dates: start: 201810
  13. MEAVERIN [Concomitant]
     Dosage: 1 DOSAGE FORM, SINGLE; LEFT ELBOW
     Route: 014
     Dates: start: 20181019, end: 20181019
  14. MEAVERIN [Concomitant]
     Dosage: 1 DOSAGE FORM, SINGLE; RIGHT KNEE
     Route: 014
     Dates: start: 20181106, end: 20181106
  15. MEAVERIN [Concomitant]
     Dosage: 1 DOSAGE FORM, SINGLE; LEFT ELBOW
     Route: 014
     Dates: start: 20181016, end: 20181016
  16. DICLOFENAC [Concomitant]
     Active Substance: DICLOFENAC
     Indication: PRODUCT USED FOR UNKNOWN INDICATION
     Dosage: 1 ML, ONCE/SINGLE
     Route: 014
     Dates: start: 20181016, end: 20181016
  17. DEXAMETHASONE. [Suspect]
     Active Substance: DEXAMETHASONE
     Dosage: 1 DOSAGE FORM, SINGLE; LEFT ELBOW
     Route: 014
     Dates: start: 20181019, end: 20181019
  18. DEXAMETHASONE. [Suspect]
     Active Substance: DEXAMETHASONE
     Dosage: 1 DOSAGE FORM, SINGLE; RIGHT KNEE
     Route: 014
     Dates: start: 20181106, end: 20181106
  19. DICLOFENAC [Concomitant]
     Active Substance: DICLOFENAC
     Dosage: 1 ML, ONCE/SINGLE
     Route: 014
     Dates: start: 20181102, end: 20181102
  20. DICLOFENAC [Concomitant]
     Active Substance: DICLOFENAC
     Dosage: 1 ML, ONCE/SINGLE
     Route: 014
     Dates: start: 20181106, end: 20181106
  21. DEXAMETHASONE. [Suspect]
     Active Substance: DEXAMETHASONE
     Indication: PRODUCT USED FOR UNKNOWN INDICATION
     Dosage: 1 DOSAGE FORM, SINGLE; LEFT ELBOW
     Route: 014
     Dates: start: 20181016, end: 20181016
  22. DEXAMETHASONE. [Suspect]
     Active Substance: DEXAMETHASONE
     Dosage: 1 DOSAGE FORM, SINGLE; RIGHT KNEE AND FOOT
     Route: 014
     Dates: start: 20181120, end: 20181120
  23. LIPOTALON [Suspect]
     Active Substance: DEXAMETHASONE PALMITATE
     Dosage: 1 DOSAGE FORM, SINGLE
     Route: 014
     Dates: start: 20181106, end: 20181106
  24. LIPOTALON [Suspect]
     Active Substance: DEXAMETHASONE PALMITATE
     Dosage: 1 DOSAGE FORM, SINGLE
     Route: 014
     Dates: start: 20181127, end: 20181127
  25. HYALURON [Concomitant]
     Dosage: 1 DOSAGE FORM, SINGLE; RIGHT KNEE
     Route: 014
     Dates: start: 20181113, end: 20181113
  26. DICLOFENAC [Concomitant]
     Active Substance: DICLOFENAC
     Dosage: 1 ML, ONCE/SINGLE
     Route: 014
     Dates: start: 20181019, end: 20181019
  27. DICLOFENAC [Concomitant]
     Active Substance: DICLOFENAC
     Dosage: 1 ML, ONCE/SINGLE
     Route: 014
     Dates: start: 20181127, end: 20181127
  28. DEXAMETHASONE. [Suspect]
     Active Substance: DEXAMETHASONE
     Dosage: 1 DOSAGE FORM, SINGLE; RIGHT KNEE AND FOOT
     Route: 014
     Dates: start: 20181113, end: 20181113
  29. LIPOTALON [Suspect]
     Active Substance: DEXAMETHASONE PALMITATE
     Dosage: 1 DOSAGE FORM, SINGLE; RIGHT KNEE AND FOOT
     Route: 014
     Dates: start: 20181113, end: 20181113
  30. PREDNISOLON JENAPHARM [Suspect]
     Active Substance: PREDNISOLONE
     Indication: ARTHRALGIA
     Dosage: 30X 20 MG
     Route: 048
     Dates: start: 20181204, end: 20181215
  31. HYALURON [Concomitant]
     Dosage: 1 DOSAGE FORM, SINGLE; RIGHT KNEE
     Route: 014
     Dates: start: 20181127, end: 20181127
  32. HYALURON [Concomitant]
     Dosage: 1 DOSAGE FORM, SINGLE; BOTH KNEES
     Route: 014
     Dates: start: 20181204, end: 20181204
  33. DICLOFENAC [Concomitant]
     Active Substance: DICLOFENAC
     Dosage: 1 ML, ONCE/SINGLE
     Route: 014
     Dates: start: 20181113, end: 20181113
  34. LIPOTALON [Suspect]
     Active Substance: DEXAMETHASONE PALMITATE
     Dosage: 1 DOSAGE FORM, SINGLE
     Route: 014
     Dates: start: 20181130, end: 20181130
  35. LIPOTALON [Suspect]
     Active Substance: DEXAMETHASONE PALMITATE
     Dosage: 1 DOSAGE FORM, SINGLE; BOTH KNEES AND FOOT
     Route: 014
     Dates: start: 20181204, end: 20181204
  36. PREDNISOLON JENAPHARM [Suspect]
     Active Substance: PREDNISOLONE
     Indication: EPICONDYLITIS
     Dosage: 40 MG, QD (20 MG, BID)
     Route: 048
     Dates: start: 201810
  37. PREDNISOLON JENAPHARM [Suspect]
     Active Substance: PREDNISOLONE
     Dosage: 20 MG, QD
     Route: 048
     Dates: start: 2018
  38. DEXAMETHASONE. [Suspect]
     Active Substance: DEXAMETHASONE
     Dosage: 1 DOSAGE FORM, SINGLE; RIGHT KNEE
     Route: 014
     Dates: start: 20181102, end: 20181102
  39. DEXAMETHASONE. [Suspect]
     Active Substance: DEXAMETHASONE
     Dosage: 1 DOSAGE FORM, SINGLE; BOTH KNEES AND FOOT
     Route: 014
     Dates: start: 20181127, end: 20181127
  40. TRIAMCINOLONE ACETONIDE. [Suspect]
     Active Substance: TRIAMCINOLONE ACETONIDE
     Indication: INTERVERTEBRAL DISC PROTRUSION
     Dosage: INJECTION THERAPY WITH 4 TRIAMCINOLONE INJECTIONS UNDER ULTRASOUND CONTROL BECAUSE OF A HERNIATED DI
     Route: 065
     Dates: start: 2020
  41. MEAVERIN [Concomitant]
     Dosage: 1 DOSAGE FORM, SINGLE; RIGHT KNEE
     Route: 014
     Dates: start: 20181102, end: 20181102
  42. MEAVERIN [Concomitant]
     Dosage: 1 DOSAGE FORM, SINGLE; BOTH KNEES AND FOOT
     Route: 014
     Dates: start: 20181127, end: 20181127
  43. DICLOFENAC [Concomitant]
     Active Substance: DICLOFENAC
     Dosage: 1 ML, ONCE/SINGLE
     Route: 014
     Dates: start: 20181120, end: 20181120
  44. DICLOFENAC [Concomitant]
     Active Substance: DICLOFENAC
     Dosage: 1 ML, ONCE/SINGLE
     Route: 014
     Dates: start: 20181130, end: 20181130

REACTIONS (22)
  - Blood glucose increased [Not Recovered/Not Resolved]
  - Hallucination [Not Recovered/Not Resolved]
  - Joint instability [Not Recovered/Not Resolved]
  - Nausea [Recovered/Resolved]
  - Fluid retention [Not Recovered/Not Resolved]
  - Blood pressure increased [Not Recovered/Not Resolved]
  - Cushing^s syndrome [Not Recovered/Not Resolved]
  - Influenza like illness [Not Recovered/Not Resolved]
  - Muscular weakness [Not Recovered/Not Resolved]
  - Application site pain [Not Recovered/Not Resolved]
  - Disturbance in attention [Not Recovered/Not Resolved]
  - Inappropriate schedule of product administration [Not Recovered/Not Resolved]
  - Cushing^s syndrome [Not Recovered/Not Resolved]
  - Arthralgia [Not Recovered/Not Resolved]
  - Sleep disorder [Not Recovered/Not Resolved]
  - Emphysema [Not Recovered/Not Resolved]
  - Cystocele [Not Recovered/Not Resolved]
  - Arthralgia [Not Recovered/Not Resolved]
  - Pyrexia [Not Recovered/Not Resolved]
  - Dermatitis allergic [Not Recovered/Not Resolved]
  - Pelvic floor muscle weakness [Not Recovered/Not Resolved]
  - Balance disorder [Not Recovered/Not Resolved]

NARRATIVE: CASE EVENT DATE: 2018
